FAERS Safety Report 16801949 (Version 1)
Quarter: 2019Q3

REPORT INFORMATION
  Report Type: Spontaneous
  Country: CN (occurrence: CN)
  Receive Date: 20190912
  Receipt Date: 20190912
  Transmission Date: 20191005
  Serious: No
  Sender: FDA-Public Use
  Company Number: CN-ELI_LILLY_AND_COMPANY-CN201909002988

PATIENT
  Sex: Male
  Weight: 52.5 kg

DRUGS (2)
  1. CEFALEXIN [Concomitant]
     Active Substance: CEPHALEXIN
     Indication: URINARY TRACT INFECTION
     Dosage: 0.5 G, BID
     Route: 048
     Dates: start: 20190823, end: 20190826
  2. CIALIS [Suspect]
     Active Substance: TADALAFIL
     Indication: ERECTILE DYSFUNCTION
     Dosage: 20 MG, DAILY
     Route: 048
     Dates: start: 20190823, end: 20190823

REACTIONS (4)
  - Vision blurred [Recovered/Resolved]
  - Painful erection [Recovered/Resolved]
  - Dizziness [Recovered/Resolved]
  - Pain in extremity [Recovered/Resolved]

NARRATIVE: CASE EVENT DATE: 20190823
